FAERS Safety Report 8139643-0 (Version None)
Quarter: 2012Q1

REPORT INFORMATION
  Report Type: 
  Country: None (occurrence: None)
  Receive Date: 20120215
  Receipt Date: 20120208
  Transmission Date: 20120608
  Serious: Yes (Hospitalization, Disabling, Other)
  Sender: FDA-Public Use
  Company Number: PHHY2011JP87694

PATIENT
  Sex: Male
  Weight: 58 kg

DRUGS (8)
  1. AFINITOR [Suspect]
     Dosage: 10 MG, DAILY
     Route: 048
     Dates: start: 20110219, end: 20110221
  2. LEVOTHYROXINE SODIUM [Concomitant]
     Dosage: 100 UG, UNK
     Route: 048
     Dates: start: 20110104, end: 20110203
  3. NORVASC [Concomitant]
     Dosage: 10 MG
     Route: 048
     Dates: start: 20110104, end: 20110203
  4. AFINITOR [Suspect]
     Dosage: 5 MG, DAILY
     Route: 048
     Dates: start: 20110314, end: 20110502
  5. AFINITOR [Suspect]
     Indication: METASTATIC RENAL CELL CARCINOMA
     Dates: start: 20100701
  6. DIOVAN [Concomitant]
     Dosage: 80 MG
     Route: 048
     Dates: start: 20110104, end: 20110203
  7. SULFAMETHOXAZOLE [Concomitant]
  8. AFINITOR [Suspect]
     Dosage: 10 MG, DAILY
     Route: 048
     Dates: start: 20110104, end: 20110114

REACTIONS (9)
  - DYSPNOEA [None]
  - HYPOXIA [None]
  - INTERSTITIAL LUNG DISEASE [None]
  - RENAL FAILURE [None]
  - TUMOUR HAEMORRHAGE [None]
  - FALL [None]
  - FEMUR FRACTURE [None]
  - WHEEZING [None]
  - MALAISE [None]
